FAERS Safety Report 24135807 (Version 2)
Quarter: 2024Q3

REPORT INFORMATION
  Report Type: Report from Study
  Country: CA (occurrence: CA)
  Receive Date: 20240725
  Receipt Date: 20240801
  Transmission Date: 20241017
  Serious: Yes (Other)
  Sender: SANDOZ
  Company Number: CA-SANDOZ-SDZ2023CA025747

PATIENT
  Sex: Male

DRUGS (1)
  1. HYRIMOZ [Suspect]
     Active Substance: ADALIMUMAB-ADAZ
     Indication: Crohn^s disease
     Dosage: 40 MG, QW
     Route: 058
     Dates: start: 20230113

REACTIONS (6)
  - Uveitis [Recovered/Resolved]
  - Crohn^s disease [Unknown]
  - Stress [Unknown]
  - Unevaluable event [Unknown]
  - Infected bite [Unknown]
  - Off label use [Unknown]
